FAERS Safety Report 6257406-8 (Version None)
Quarter: 2009Q3

REPORT INFORMATION
  Report Type: 
  Country: None (occurrence: None)
  Receive Date: 20090706
  Receipt Date: 20090421
  Transmission Date: 20100115
  Serious: Yes (Hospitalization)
  Sender: FDA-Public Use
  Company Number: CH-MERCK-0902CHE00019

PATIENT
  Age: 54 Year
  Sex: Female

DRUGS (7)
  1. JANUMET [Suspect]
     Indication: TYPE 1 DIABETES MELLITUS
     Route: 048
     Dates: start: 20081201, end: 20090127
  2. JANUVIA [Suspect]
     Indication: TYPE 1 DIABETES MELLITUS
     Route: 048
     Dates: start: 20080901, end: 20081201
  3. METFORMIN [Suspect]
     Indication: TYPE 1 DIABETES MELLITUS
     Route: 048
     Dates: start: 20080901, end: 20081201
  4. INSULIN GLARGINE [Concomitant]
     Indication: TYPE 1 DIABETES MELLITUS
     Route: 058
  5. CALCIUM CARBONATE AND CHOLECALCIFEROL [Concomitant]
     Route: 065
  6. ASPIRIN [Concomitant]
     Route: 048
     Dates: end: 20090127
  7. CITALOPRAM HYDROBROMIDE [Concomitant]
     Indication: DEPRESSION
     Route: 048

REACTIONS (4)
  - HAEMOLYTIC ANAEMIA [None]
  - HAEMOLYTIC URAEMIC SYNDROME [None]
  - RENAL FAILURE ACUTE [None]
  - THROMBOCYTOPENIA [None]
